FAERS Safety Report 5068232-X (Version None)
Quarter: 2006Q3

REPORT INFORMATION
  Report Type: 
  Country: None (occurrence: None)
  Receive Date: 20060802
  Receipt Date: 20050614
  Transmission Date: 20061208
  Serious: No
  Sender: FDA-Public Use
  Company Number: US-BRISTOL-MYERS SQUIBB COMPANY-13002548

PATIENT
  Age: 87 Year
  Sex: Female
  Weight: 73 kg

DRUGS (9)
  1. COUMADIN [Suspect]
     Indication: CARDIAC DISORDER
     Dates: start: 20041201
  2. CALTRATE [Concomitant]
  3. ATENOLOL [Concomitant]
  4. PROTONIX [Concomitant]
  5. FUROSEMIDE [Concomitant]
  6. LISINOPRIL [Concomitant]
  7. KLOR-CON [Concomitant]
  8. FOSAMAX [Concomitant]
  9. PROPOXYPHENE HYDROCHLORIDE [Concomitant]

REACTIONS (1)
  - RASH PRURITIC [None]
